FAERS Safety Report 10142227 (Version 1)
Quarter: 2014Q2

REPORT INFORMATION
  Report Type: Spontaneous
  Country: DK (occurrence: DK)
  Receive Date: 20140429
  Receipt Date: 20140429
  Transmission Date: 20141212
  Serious: Yes (Hospitalization)
  Sender: FDA-Public Use
  Company Number: DK-BIOMARINAP-DK-2014-103082

PATIENT
  Age: 28 Year
  Sex: Male
  Weight: 75 kg

DRUGS (2)
  1. KUVAN [Suspect]
     Indication: PHENYLKETONURIA
     Dosage: 1500 MG, QD
     Route: 048
     Dates: start: 20130422, end: 20140115
  2. PANTOLOC                           /01263204/ [Concomitant]
     Indication: REFLUX GASTRITIS
     Dosage: 40 MG, UNK
     Dates: start: 20131212

REACTIONS (1)
  - Chest pain [Not Recovered/Not Resolved]
